FAERS Safety Report 4333928-1 (Version None)
Quarter: 2004Q2

REPORT INFORMATION
  Report Type: 
  Country: None (occurrence: None)
  Receive Date: 20040402
  Receipt Date: 20040318
  Transmission Date: 20050107
  Serious: Yes (Hospitalization)
  Sender: FDA-Public Use
  Company Number: 205372

PATIENT
  Sex: Male
  Weight: 151 kg

DRUGS (3)
  1. AVASTIN [Suspect]
     Indication: RENAL CELL CARCINOMA STAGE UNSPECIFIED
     Dosage: 10 MG/KG, Q2W, INTRAVENOUS
     Route: 042
     Dates: start: 20040130
  2. INTERFERON ALPHA (INTERFERON ALFA) [Concomitant]
  3. ADVIL [Concomitant]

REACTIONS (1)
  - PULMONARY EMBOLISM [None]
